FAERS Safety Report 21295780 (Version 2)
Quarter: 2022Q4

REPORT INFORMATION
  Report Type: Spontaneous
  Country: US (occurrence: US)
  Receive Date: 20220906
  Receipt Date: 20221012
  Transmission Date: 20230113
  Serious: Yes (Hospitalization, Other)
  Sender: FDA-Public Use
  Company Number: US-BEH-2022149274

PATIENT
  Age: 54 Year
  Sex: Female

DRUGS (11)
  1. BERINERT [Suspect]
     Active Substance: HUMAN C1-ESTERASE INHIBITOR
     Indication: Hereditary angioedema
     Dosage: 1300 INTERNATIONAL UNIT, PRN
     Route: 042
     Dates: start: 20220827
  2. BERINERT [Suspect]
     Active Substance: HUMAN C1-ESTERASE INHIBITOR
     Indication: Hereditary angioedema
     Dosage: 1300 INTERNATIONAL UNIT, PRN
     Route: 042
     Dates: start: 20220827
  3. BERINERT [Suspect]
     Active Substance: HUMAN C1-ESTERASE INHIBITOR
     Indication: Hereditary angioedema
     Dosage: 1300 INTERNATIONAL UNIT, PRN
     Route: 042
     Dates: start: 20220827
  4. BERINERT [Suspect]
     Active Substance: HUMAN C1-ESTERASE INHIBITOR
     Indication: Hereditary angioedema
     Dosage: 1300 INTERNATIONAL UNIT, PRN
     Route: 042
     Dates: start: 20220827
  5. BERINERT [Suspect]
     Active Substance: HUMAN C1-ESTERASE INHIBITOR
     Indication: Prophylaxis
     Dosage: 1300 INTERNATIONAL UNIT, PRN
     Route: 042
     Dates: start: 20220830
  6. BERINERT [Suspect]
     Active Substance: HUMAN C1-ESTERASE INHIBITOR
     Indication: Prophylaxis
     Dosage: 1300 INTERNATIONAL UNIT, PRN
     Route: 042
     Dates: start: 20220830
  7. BERINERT [Suspect]
     Active Substance: HUMAN C1-ESTERASE INHIBITOR
     Indication: Prophylaxis
     Dosage: 1300 INTERNATIONAL UNIT, PRN
     Route: 042
     Dates: start: 20220830
  8. BERINERT [Suspect]
     Active Substance: HUMAN C1-ESTERASE INHIBITOR
     Indication: Prophylaxis
     Dosage: 1300 INTERNATIONAL UNIT, PRN
     Route: 042
     Dates: start: 20220830
  9. FIRAZYR [Concomitant]
     Active Substance: ICATIBANT ACETATE
     Indication: Prophylaxis
     Dosage: 1 DOSAGE FORM, SINGLE
     Route: 065
     Dates: start: 20220830
  10. FIRAZYR [Concomitant]
     Active Substance: ICATIBANT ACETATE
     Dosage: 1 DOSAGE FORM
     Route: 065
     Dates: start: 20220921
  11. FIRAZYR [Concomitant]
     Active Substance: ICATIBANT ACETATE
     Dosage: 1 DOSAGE FORM
     Route: 065
     Dates: start: 20220925

REACTIONS (1)
  - Aneurysm [Unknown]

NARRATIVE: CASE EVENT DATE: 20220830
